FAERS Safety Report 9313476 (Version 1)
Quarter: 2013Q2

REPORT INFORMATION
  Report Type: Spontaneous
  Country: US (occurrence: US)
  Receive Date: 20130528
  Receipt Date: 20130528
  Transmission Date: 20140414
  Serious: No
  Sender: FDA-Public Use
  Company Number: US-ABBOTT-13P-163-1050548-00

PATIENT
  Age: 49 Year
  Sex: Male
  Weight: 71.73 kg

DRUGS (5)
  1. ANDROGEL 1.62% [Suspect]
     Indication: BLOOD TESTOSTERONE DECREASED
     Dates: start: 201208
  2. MOBIC [Concomitant]
     Indication: PRODUCT USED FOR UNKNOWN INDICATION
  3. WELLBUTRIN XR [Concomitant]
     Indication: ANTIDEPRESSANT THERAPY
  4. CITALOPRAM [Concomitant]
     Indication: ANTIDEPRESSANT THERAPY
  5. CIALIS [Concomitant]
     Indication: PRODUCT USED FOR UNKNOWN INDICATION

REACTIONS (1)
  - Neck pain [Not Recovered/Not Resolved]
